FAERS Safety Report 23940965 (Version 4)
Quarter: 2024Q2

REPORT INFORMATION
  Report Type: Spontaneous
  Country: JP (occurrence: JP)
  Receive Date: 20240605
  Receipt Date: 20240621
  Transmission Date: 20240716
  Serious: Yes (Life-Threatening, Other)
  Sender: FDA-Public Use
  Company Number: JP-PFIZER INC-PV202400073160

PATIENT
  Age: 74 Year
  Sex: Male
  Weight: 38.7 kg

DRUGS (5)
  1. MEROPENEM [Suspect]
     Active Substance: MEROPENEM
     Indication: Pneumonia aspiration
     Dosage: UNK
     Route: 041
  2. MEROPENEM [Suspect]
     Active Substance: MEROPENEM
     Indication: Disseminated intravascular coagulation
  3. THROMBOMODULIN ALFA [Suspect]
     Active Substance: THROMBOMODULIN ALFA
     Indication: Disseminated intravascular coagulation
     Dosage: UNK
  4. THROMBOMODULIN ALFA [Suspect]
     Active Substance: THROMBOMODULIN ALFA
     Indication: Pneumonia aspiration
  5. VITAMIN B1 [Concomitant]
     Active Substance: THIAMINE HYDROCHLORIDE
     Indication: Wernicke^s encephalopathy
     Dosage: HIGH DOSE
     Route: 042

REACTIONS (2)
  - Disseminated intravascular coagulation [Recovering/Resolving]
  - Disease progression [Recovering/Resolving]
